FAERS Safety Report 21339742 (Version 1)
Quarter: 2022Q3

REPORT INFORMATION
  Report Type: Spontaneous
  Country: US (occurrence: US)
  Receive Date: 20220915
  Receipt Date: 20220915
  Transmission Date: 20221027
  Serious: No
  Sender: FDA-Public Use
  Company Number: US-SA-SAC20220914000187

PATIENT
  Sex: Female

DRUGS (5)
  1. DUPIXENT [Suspect]
     Active Substance: DUPILUMAB
     Indication: Dyshidrotic eczema
     Dosage: 300 MG, QOW
     Route: 058
  2. HALOBETASOL PROPIONATE [Concomitant]
     Active Substance: HALOBETASOL PROPIONATE
  3. TRAZODONE HCL [Concomitant]
     Active Substance: TRAZODONE HYDROCHLORIDE
  4. BETAMETHASONE [Concomitant]
     Active Substance: BETAMETHASONE
  5. MYCOPHENOLIC ACID [Concomitant]
     Active Substance: MYCOPHENOLIC ACID

REACTIONS (1)
  - Product use in unapproved indication [Unknown]
